FAERS Safety Report 13636640 (Version 1)
Quarter: 2017Q2

REPORT INFORMATION
  Report Type: Spontaneous
  Country: US (occurrence: US)
  Receive Date: 20170531
  Receipt Date: 20170531
  Transmission Date: 20170830
  Serious: No
  Sender: FDA-Public Use
  Company Number: US-ASTELLAS-1839075

PATIENT
  Age: 81 Year
  Sex: Male

DRUGS (14)
  1. ALBUTEROL/IPRATROPIUM [Concomitant]
     Active Substance: ALBUTEROL\IPRATROPIUM
  2. LASIX [Concomitant]
     Active Substance: FUROSEMIDE
  3. PRILOSEC [Concomitant]
     Active Substance: OMEPRAZOLE MAGNESIUM
  4. MUCINEX [Concomitant]
     Active Substance: GUAIFENESIN
  5. DIGOXIN. [Concomitant]
     Active Substance: DIGOXIN
  6. LISINOPRIL. [Concomitant]
     Active Substance: LISINOPRIL
  7. SPIRIVA [Concomitant]
     Active Substance: TIOTROPIUM BROMIDE MONOHYDRATE
  8. TARCEVA [Suspect]
     Active Substance: ERLOTINIB HYDROCHLORIDE
     Indication: LUNG NEOPLASM MALIGNANT
     Route: 048
     Dates: start: 20160928
  9. GLIMEPIRIDE. [Concomitant]
     Active Substance: GLIMEPIRIDE
  10. PRILOSEC [Concomitant]
     Active Substance: OMEPRAZOLE MAGNESIUM
  11. DILTIAZEM HCL [Concomitant]
     Active Substance: DILTIAZEM HYDROCHLORIDE
  12. SYMBICORT [Concomitant]
     Active Substance: BUDESONIDE\FORMOTEROL FUMARATE DIHYDRATE
  13. REMERON SOLTAB [Concomitant]
     Active Substance: MIRTAZAPINE
  14. FLOMAX [Concomitant]
     Active Substance: TAMSULOSIN HYDROCHLORIDE

REACTIONS (11)
  - Fatigue [Not Recovered/Not Resolved]
  - Eye irritation [Unknown]
  - Dyspnoea [Unknown]
  - Rash [Unknown]
  - Pyrexia [Unknown]
  - Oral pain [Unknown]
  - Decreased appetite [Unknown]
  - Diarrhoea [Unknown]
  - Urine output decreased [Not Recovered/Not Resolved]
  - Nausea [Unknown]
  - Vomiting [Unknown]

NARRATIVE: CASE EVENT DATE: 20160930
